FAERS Safety Report 12154447 (Version 1)
Quarter: 2016Q1

REPORT INFORMATION
  Report Type: Spontaneous
  Country: US (occurrence: US)
  Receive Date: 20160307
  Receipt Date: 20160307
  Transmission Date: 20160526
  Serious: No
  Sender: FDA-Public Use
  Company Number: US-PFIZER INC-2016120267

PATIENT
  Age: 53 Year
  Sex: Female

DRUGS (1)
  1. IBRANCE [Suspect]
     Active Substance: PALBOCICLIB
     Indication: LUNG NEOPLASM MALIGNANT
     Dosage: 125 MG, 1X/DAY
     Route: 048
     Dates: start: 20151110

REACTIONS (5)
  - Stomatitis [Unknown]
  - Chills [Unknown]
  - Alopecia [Unknown]
  - Product use issue [Unknown]
  - Hot flush [Unknown]

NARRATIVE: CASE EVENT DATE: 20151110
